FAERS Safety Report 6707394-2 (Version None)
Quarter: 2010Q2

REPORT INFORMATION
  Report Type: 
  Country: None (occurrence: None)
  Receive Date: 20100503
  Receipt Date: 20090420
  Transmission Date: 20101027
  Serious: No
  Sender: FDA-Public Use
  Company Number: US-ASTRAZENECA-2009UW09996

PATIENT
  Sex: Male
  Weight: 117.9 kg

DRUGS (5)
  1. NEXIUM [Suspect]
     Indication: GASTROOESOPHAGEAL REFLUX DISEASE
     Route: 048
  2. LASIC [Concomitant]
  3. METOPROLOL [Concomitant]
  4. CHANTIX [Concomitant]
  5. RANITIDINE [Concomitant]

REACTIONS (1)
  - DRUG SCREEN POSITIVE [None]
